FAERS Safety Report 7015535-5 (Version None)
Quarter: 2010Q3

REPORT INFORMATION
  Report Type: 
  Country: None (occurrence: None)
  Receive Date: 20100927
  Receipt Date: 20100922
  Transmission Date: 20110219
  Serious: Yes (Other)
  Sender: FDA-Public Use
  Company Number: SE-JNJFOC-20060307455

PATIENT
  Sex: Male

DRUGS (1)
  1. IPREN [Suspect]
     Indication: INFLUENZA

REACTIONS (2)
  - ANAPHYLACTIC SHOCK [None]
  - NEURITIS [None]
